FAERS Safety Report 10506297 (Version 2)
Quarter: 2014Q4

REPORT INFORMATION
  Report Type: Report from Study
  Country: FR (occurrence: FR)
  Receive Date: 20141009
  Receipt Date: 20141017
  Transmission Date: 20150528
  Serious: Yes (Hospitalization)
  Sender: FDA-Public Use
  Company Number: FR-ROCHE-1469971

PATIENT
  Sex: Male

DRUGS (11)
  1. DEXAMETHASONE. [Concomitant]
     Active Substance: DEXAMETHASONE
  2. MELPHALAN [Concomitant]
     Active Substance: MELPHALAN
  3. CYTARABINE. [Concomitant]
     Active Substance: CYTARABINE
  4. RITUXIMAB [Suspect]
     Active Substance: RITUXIMAB
     Indication: MANTLE CELL LYMPHOMA
     Route: 041
     Dates: start: 20130108, end: 20140603
  5. CARMUSTINE [Concomitant]
     Active Substance: CARMUSTINE
  6. INEXIUM [Concomitant]
     Active Substance: ESOMEPRAZOLE
     Dosage: DOSE : 40 MG/D
     Route: 048
  7. ETOPOSIDE. [Concomitant]
     Active Substance: ETOPOSIDE
  8. CISPLATIN. [Concomitant]
     Active Substance: CISPLATIN
  9. ZELITREX [Concomitant]
     Active Substance: VALACYCLOVIR HYDROCHLORIDE
     Route: 048
  10. BACTRIM [Concomitant]
     Active Substance: SULFAMETHOXAZOLE\TRIMETHOPRIM
  11. LEDERFOLINE [Concomitant]
     Active Substance: LEUCOVORIN CALCIUM
     Dosage: DOSE : 25 MG/WEEK
     Route: 048

REACTIONS (3)
  - Lymphadenitis [Not Recovered/Not Resolved]
  - Hypogammaglobulinaemia [Not Recovered/Not Resolved]
  - Sarcoidosis [Not Recovered/Not Resolved]

NARRATIVE: CASE EVENT DATE: 2014
